FAERS Safety Report 10564696 (Version 2)
Quarter: 2014Q4

REPORT INFORMATION
  Report Type: Spontaneous
  Country: FR (occurrence: FR)
  Receive Date: 20141105
  Receipt Date: 20141118
  Transmission Date: 20150529
  Serious: Yes (Other)
  Sender: FDA-Public Use
  Company Number: FR-JNJFOC-20141014956

PATIENT
  Age: 34 Year
  Sex: Female

DRUGS (2)
  1. GYNODAKTARIN [Suspect]
     Active Substance: MICONAZOLE
     Route: 048
  2. GYNODAKTARIN [Suspect]
     Active Substance: MICONAZOLE
     Indication: PRODUCT USED FOR UNKNOWN INDICATION
     Route: 048
     Dates: start: 20140924, end: 20140925

REACTIONS (4)
  - Medication error [Recovered/Resolved]
  - Diarrhoea [Unknown]
  - Incorrect route of drug administration [Recovered/Resolved]
  - Exposure during pregnancy [Unknown]

NARRATIVE: CASE EVENT DATE: 20140924
